FAERS Safety Report 13692096 (Version 2)
Quarter: 2017Q3

REPORT INFORMATION
  Report Type: Spontaneous
  Country: IE (occurrence: IE)
  Receive Date: 20170627
  Receipt Date: 20170712
  Transmission Date: 20171127
  Serious: Yes (Hospitalization, Other)
  Sender: FDA-Public Use
  Company Number: IE-ABBVIE-17K-229-2017411-00

PATIENT
  Age: 37 Year
  Sex: Female

DRUGS (1)
  1. ADALIMUMAB [Suspect]
     Active Substance: ADALIMUMAB
     Indication: PRODUCT USED FOR UNKNOWN INDICATION
     Route: 058

REACTIONS (12)
  - Small intestinal obstruction [Unknown]
  - Dysphagia [Unknown]
  - Abdominal pain [Unknown]
  - Colectomy [Unknown]
  - Constipation [Unknown]
  - Gastrointestinal disorder [Unknown]
  - Anal stenosis [Unknown]
  - Abscess intestinal [Unknown]
  - Intestinal stenosis [Unknown]
  - Drug tolerance decreased [Recovered/Resolved]
  - Weight decreased [Unknown]
  - Oesophageal stenosis [Unknown]
